FAERS Safety Report 15339527 (Version 2)
Quarter: 2018Q4

REPORT INFORMATION
  Report Type: Spontaneous
  Country: PT (occurrence: PT)
  Receive Date: 20180831
  Receipt Date: 20181005
  Transmission Date: 20190204
  Serious: Yes (Disabling)
  Sender: FDA-Public Use
  Company Number: PT-PFIZER INC-2018347331

PATIENT
  Sex: Female

DRUGS (1)
  1. ATORVASTATINA [Suspect]
     Active Substance: ATORVASTATIN
     Indication: HYPERCHOLESTEROLAEMIA
     Dosage: 20 MG, 1X/DAY
     Route: 048
     Dates: end: 20180725

REACTIONS (6)
  - Muscle fatigue [Recovering/Resolving]
  - Heart rate increased [Not Recovered/Not Resolved]
  - Chest pain [Recovering/Resolving]
  - Rash pruritic [Recovering/Resolving]
  - Haematoma [Recovering/Resolving]
  - Amnesia [Recovering/Resolving]

NARRATIVE: CASE EVENT DATE: 201809
